FAERS Safety Report 9314116 (Version 3)
Quarter: 2013Q4

REPORT INFORMATION
  Report Type: Spontaneous
  Country: FR (occurrence: FR)
  Receive Date: 20130529
  Receipt Date: 20131031
  Transmission Date: 20140711
  Serious: Yes (Other)
  Sender: FDA-Public Use
  Company Number: FR-JNJFOC-20130516463

PATIENT
  Age: 4 Decade
  Sex: Female
  Weight: 62 kg

DRUGS (4)
  1. SIMPONI [Suspect]
     Indication: SPONDYLOARTHROPATHY
     Route: 058
     Dates: start: 20130428, end: 20130428
  2. SIMPONI [Suspect]
     Indication: PSORIASIS
     Route: 058
     Dates: start: 20130428, end: 20130428
  3. DOLIPRANE [Concomitant]
     Route: 048
  4. KETOPROFEN [Concomitant]
     Route: 048

REACTIONS (4)
  - Conjunctivitis [Recovered/Resolved with Sequelae]
  - Myopia [Recovered/Resolved with Sequelae]
  - Visual acuity reduced [Recovered/Resolved with Sequelae]
  - Episcleritis [Recovered/Resolved with Sequelae]
